FAERS Safety Report 11205090 (Version 1)
Quarter: 2015Q2

REPORT INFORMATION
  Report Type: Spontaneous
  Country: IT (occurrence: IT)
  Receive Date: 20150622
  Receipt Date: 20150622
  Transmission Date: 20150821
  Serious: Yes (Hospitalization)
  Sender: FDA-Public Use
  Company Number: IT-SA-2015SA087128

PATIENT
  Age: 74 Year
  Sex: Male

DRUGS (6)
  1. GLIBENCLAMIDE [Suspect]
     Active Substance: GLYBURIDE
     Indication: DIABETES MELLITUS
     Route: 065
  2. AVODART [Concomitant]
     Active Substance: DUTASTERIDE
     Dosage: STRENGTH: 0.5 MG DOSE:1 UNIT(S)
     Route: 048
  3. TRIATEC [Concomitant]
     Active Substance: RAMIPRIL
     Dosage: STRENGTH: 2.5 MG DIVISIBLE TABLETS DOSE:1 UNIT(S)
     Route: 048
  4. INSULIN LISPRO [Concomitant]
     Active Substance: INSULIN LISPRO
     Dosage: DOSE:7 UNIT(S)
     Route: 065
  5. ATENOLOL/CHLORTALIDONE [Concomitant]
     Route: 065
  6. TAMSULOSIN HYDROCHLORIDE. [Concomitant]
     Active Substance: TAMSULOSIN HYDROCHLORIDE
     Route: 065

REACTIONS (3)
  - Injury [Recovering/Resolving]
  - Fall [Recovering/Resolving]
  - Hypoglycaemia [Recovering/Resolving]

NARRATIVE: CASE EVENT DATE: 20150409
